FAERS Safety Report 7739955-6 (Version None)
Quarter: 2011Q3

REPORT INFORMATION
  Report Type: 
  Country: None (occurrence: None)
  Receive Date: 20110909
  Receipt Date: 20110831
  Transmission Date: 20111222
  Serious: Yes (Other)
  Sender: FDA-Public Use
  Company Number: CA-JNJFOC-20110511867

PATIENT
  Sex: Female

DRUGS (4)
  1. OXYCONTIN [Concomitant]
     Indication: MATERNAL EXPOSURE DURING PREGNANCY
     Route: 050
  2. REMICADE [Suspect]
     Indication: MATERNAL EXPOSURE DURING PREGNANCY
     Route: 050
     Dates: start: 20091101, end: 20110301
  3. METHOTREXATE [Concomitant]
     Indication: MATERNAL EXPOSURE DURING PREGNANCY
     Route: 050
  4. AMITRIPTYLINE HCL [Concomitant]
     Indication: MATERNAL EXPOSURE DURING PREGNANCY
     Route: 050

REACTIONS (2)
  - CAESAREAN SECTION [None]
  - MATERNAL EXPOSURE DURING PREGNANCY [None]
